FAERS Safety Report 7978740-7 (Version None)
Quarter: 2011Q4

REPORT INFORMATION
  Report Type: 
  Country: None (occurrence: None)
  Receive Date: 20111214
  Receipt Date: 20111129
  Transmission Date: 20120403
  Serious: Yes (Hospitalization)
  Sender: FDA-Public Use
  Company Number: IT-CELGENEUS-083-21880-11114133

PATIENT
  Sex: Female

DRUGS (2)
  1. REVLIMID [Suspect]
     Indication: MULTIPLE MYELOMA
     Dosage: 25 MILLIGRAM
     Route: 048
     Dates: start: 20040505, end: 20110624
  2. DEXAMETHASONE [Concomitant]
     Route: 048
     Dates: start: 20040505, end: 20110426

REACTIONS (4)
  - MYELODYSPLASTIC SYNDROME [None]
  - ANAEMIA [None]
  - CARDIAC FAILURE [None]
  - THROMBOCYTOPENIA [None]
